FAERS Safety Report 14169036 (Version 1)
Quarter: 2017Q4

REPORT INFORMATION
  Report Type: Spontaneous
  Country: NL (occurrence: NL)
  Receive Date: 20171107
  Receipt Date: 20171107
  Transmission Date: 20180321
  Serious: Yes (Life-Threatening, Hospitalization, Other)
  Sender: FDA-Public Use
  Company Number: NL-MYLANLABS-2017M1069272

PATIENT
  Age: 53 Year
  Sex: Female

DRUGS (1)
  1. DILTIAZEM. [Suspect]
     Active Substance: DILTIAZEM
     Indication: PRODUCT USED FOR UNKNOWN INDICATION
     Route: 065

REACTIONS (6)
  - Toxicity to various agents [Recovering/Resolving]
  - Intentional overdose [Recovered/Resolved]
  - Cardiogenic shock [Recovering/Resolving]
  - Ischaemia [Recovering/Resolving]
  - Lactic acidosis [Recovered/Resolved]
  - Reperfusion injury [Recovering/Resolving]
